FAERS Safety Report 5909045-3 (Version None)
Quarter: 2008Q3

REPORT INFORMATION
  Report Type: 
  Country: None (occurrence: None)
  Receive Date: 20080930
  Receipt Date: 20080918
  Transmission Date: 20090109
  Serious: Yes (Hospitalization)
  Sender: FDA-Public Use
  Company Number: 2008SP019585

PATIENT

DRUGS (1)
  1. ASMANEX (MOMETASONE FUROATE (ORAL)) [Suspect]
     Indication: DRUG USE FOR UNKNOWN INDICATION
     Dosage: PO
     Route: 048

REACTIONS (2)
  - ADVERSE EVENT [None]
  - ANAEMIA [None]
